FAERS Safety Report 24292851 (Version 1)
Quarter: 2024Q3

REPORT INFORMATION
  Report Type: Report from Study
  Country: ZA (occurrence: None)
  Receive Date: 20240906
  Receipt Date: 20240906
  Transmission Date: 20241017
  Serious: Yes (Hospitalization)
  Sender: ASTRAZENECA
  Company Number: 2024A198409

PATIENT
  Age: 80 Year
  Sex: Female

DRUGS (10)
  1. BUDESONIDE\FORMOTEROL [Suspect]
     Active Substance: BUDESONIDE\FORMOTEROL
     Indication: Asthma
     Dosage: UNKNOWN UNKNOWN
     Route: 055
  2. GLICLAZIDE [Concomitant]
     Active Substance: GLICLAZIDE
     Indication: Type 2 diabetes mellitus
     Route: 048
  3. DEMAZIN [Concomitant]
     Active Substance: CHLORPHENIRAMINE MALEATE\PHENYLPROPANOLAMINE HYDROCHLORIDE
     Route: 048
  4. IVY EXTRACT [Concomitant]
     Active Substance: IVY EXTRACT
     Route: 048
  5. AMITRIPTYLINE [Concomitant]
     Active Substance: AMITRIPTYLINE
     Indication: Depression
     Route: 048
  6. B-CAL DM [Concomitant]
     Indication: Mineral supplementation
     Route: 048
  7. OPTISULIN [Concomitant]
     Indication: Type 1 diabetes mellitus
     Route: 058
  8. METFORMIN HYDROCHLORIDE [Concomitant]
     Active Substance: METFORMIN HYDROCHLORIDE
     Indication: Type 2 diabetes mellitus
     Route: 048
  9. VALSARTAN [Concomitant]
     Active Substance: VALSARTAN
     Indication: Hypertension
     Route: 048
  10. MONTELUKAST SODIUM [Concomitant]
     Active Substance: MONTELUKAST\MONTELUKAST SODIUM
     Indication: Asthma
     Route: 048

REACTIONS (2)
  - Spinal osteoarthritis [Unknown]
  - Fall [Unknown]
